FAERS Safety Report 8610360-3 (Version None)
Quarter: 2012Q3

REPORT INFORMATION
  Report Type: 
  Country: None (occurrence: None)
  Receive Date: 20120822
  Receipt Date: 20120816
  Transmission Date: 20120928
  Serious: Yes (Hospitalization)
  Sender: FDA-Public Use
  Company Number: PHHY2012AU071128

PATIENT
  Sex: Male
  Weight: 62.2 kg

DRUGS (4)
  1. ESOMEPRAZOLE SODIUM [Concomitant]
     Dosage: 20 MG, MANE
     Route: 048
     Dates: start: 20120706
  2. CLOZARIL [Suspect]
     Indication: SCHIZOPHRENIA
     Dosage: 250 MG
     Route: 048
     Dates: start: 20110801
  3. OLANZAPINE [Concomitant]
     Dosage: 10 MG, TWICE DAILY
     Route: 048
     Dates: start: 20120803
  4. CLOZARIL [Suspect]
     Dosage: 100 MG PER DAY
     Route: 048
     Dates: start: 20120704

REACTIONS (2)
  - NEUTROPHIL COUNT DECREASED [None]
  - TROPONIN INCREASED [None]
